FAERS Safety Report 20907893 (Version 2)
Quarter: 2022Q2

REPORT INFORMATION
  Report Type: Report from Study
  Country: US (occurrence: None)
  Receive Date: 20220602
  Receipt Date: 20220629
  Transmission Date: 20220721
  Serious: Yes (Other)
  Sender: FDA-Public Use
  Company Number: 2022A200406

PATIENT
  Sex: Male
  Weight: 120.2 kg

DRUGS (1)
  1. FARXIGA [Suspect]
     Active Substance: DAPAGLIFLOZIN PROPANEDIOL
     Indication: Diabetes mellitus
     Route: 048

REACTIONS (3)
  - Cerebrovascular accident [Unknown]
  - Product dose omission issue [Unknown]
  - Hypertension [Unknown]
